FAERS Safety Report 4824466-8 (Version None)
Quarter: 2005Q4

REPORT INFORMATION
  Report Type: 
  Country: None (occurrence: None)
  Receive Date: 20051108
  Receipt Date: 20051002
  Transmission Date: 20060501
  Serious: Yes (Hospitalization)
  Sender: FDA-Public Use
  Company Number: EWC051046743

PATIENT
  Age: 69 Year
  Sex: Female

DRUGS (2)
  1. GEMZAR [Suspect]
     Indication: BILE DUCT CANCER
     Dosage: 1540 MG
     Dates: start: 20051006
  2. ELOXATIN [Concomitant]

REACTIONS (2)
  - BLISTER [None]
  - URTICARIA [None]
